FAERS Safety Report 7901499-6 (Version None)
Quarter: 2011Q4

REPORT INFORMATION
  Report Type: 
  Country: None (occurrence: None)
  Receive Date: 20111108
  Receipt Date: 20111027
  Transmission Date: 20120403
  Serious: Yes (Hospitalization)
  Sender: FDA-Public Use
  Company Number: US-SANOFI-AVENTIS-2011SA071396

PATIENT
  Age: 68 Year
  Sex: Female

DRUGS (10)
  1. CLOPIDOGREL BISULFATE [Suspect]
     Dates: start: 20110324, end: 20111007
  2. ASPIRIN [Suspect]
     Dates: start: 20110324
  3. ACE INHIBITOR NOS [Concomitant]
  4. AMARYL [Concomitant]
  5. CHOLESTEROL- AND TRIGLYCERIDE REDUCERS [Concomitant]
     Dates: start: 20110324
  6. METFORMIN HCL [Concomitant]
  7. CLOPIDOGREL BISULFATE [Suspect]
     Dates: start: 20111001
  8. ANTITHROMBOTIC AGENTS [Concomitant]
     Route: 048
     Dates: start: 20110324
  9. BETA BLOCKING AGENTS [Concomitant]
     Dates: start: 20110324
  10. ALL OTHER THERAPEUTIC PRODUCTS [Concomitant]
     Dates: start: 20110324

REACTIONS (5)
  - GASTROINTESTINAL HAEMORRHAGE [None]
  - GASTRITIS EROSIVE [None]
  - DYSPNOEA [None]
  - MICROCYTIC ANAEMIA [None]
  - HERNIA [None]
